FAERS Safety Report 11753395 (Version 1)
Quarter: 2015Q4

REPORT INFORMATION
  Report Type: Spontaneous
  Country: IN (occurrence: IN)
  Receive Date: 20151119
  Receipt Date: 20151119
  Transmission Date: 20160304
  Serious: Yes (Hospitalization, Other)
  Sender: FDA-Public Use
  Company Number: IN-WATSON-2015-24752

PATIENT
  Age: 25 Year
  Sex: Female
  Weight: 55 kg

DRUGS (4)
  1. ATENOLOL (UNKNOWN) [Suspect]
     Active Substance: ATENOLOL
     Indication: OVERDOSE
  2. ATENOLOL (UNKNOWN) [Suspect]
     Active Substance: ATENOLOL
     Indication: PRODUCT USED FOR UNKNOWN INDICATION
     Dosage: 1000 MG, TOTAL
     Route: 048
  3. METHYLDOPA. [Concomitant]
     Active Substance: METHYLDOPA
     Indication: PRODUCT USED FOR UNKNOWN INDICATION
     Dosage: 600 MG, TOTAL
     Route: 048
  4. CIPROFLOXACIN. [Concomitant]
     Active Substance: CIPROFLOXACIN
     Indication: PRODUCT USED FOR UNKNOWN INDICATION
     Dosage: 2500 MG, TOTAL
     Route: 048

REACTIONS (3)
  - Bradyarrhythmia [Recovered/Resolved]
  - Overdose [Recovered/Resolved]
  - Atrioventricular block first degree [Recovered/Resolved]
